FAERS Safety Report 18737593 (Version 2)
Quarter: 2021Q1

REPORT INFORMATION
  Report Type: Spontaneous
  Country: US (occurrence: US)
  Receive Date: 20210113
  Receipt Date: 20210202
  Transmission Date: 20210419
  Serious: Yes (Other)
  Sender: FDA-Public Use
  Company Number: US-PFIZER INC-03H-163-0209804-00

PATIENT
  Age: 38 Year
  Sex: Male
  Weight: 80 kg

DRUGS (7)
  1. MIDAZOLAM. [Concomitant]
     Active Substance: MIDAZOLAM
     Dosage: 2.5 MG
  2. EPINEPHRINE. [Concomitant]
     Active Substance: EPINEPHRINE
     Dosage: UNK (1 /400,000)
  3. FENTANYL. [Concomitant]
     Active Substance: FENTANYL
     Dosage: 100 PG
  4. BUPIVACAINE HCL [Suspect]
     Active Substance: BUPIVACAINE HYDROCHLORIDE
     Indication: ARTHROSCOPY
  5. MORPHINE [Concomitant]
     Active Substance: MORPHINE
     Dosage: 2 MG
  6. LIDOCAINE. [Concomitant]
     Active Substance: LIDOCAINE
     Dosage: 23 ML
  7. BUPIVACAINE HCL [Suspect]
     Active Substance: BUPIVACAINE HYDROCHLORIDE
     Indication: LOCAL ANAESTHESIA
     Dosage: 60 ML (60 ML OF 0.25% BUPIVACAINE (150 MG))
     Route: 014

REACTIONS (10)
  - Dysarthria [Recovered/Resolved]
  - Pallor [Recovered/Resolved]
  - Tremor [Recovered/Resolved]
  - Cardiotoxicity [Recovered/Resolved]
  - Product use issue [Unknown]
  - Tachycardia [Recovered/Resolved]
  - Electrocardiogram T wave inversion [Recovered/Resolved]
  - Electrocardiogram QRS complex prolonged [Recovered/Resolved]
  - Blood pressure increased [Recovered/Resolved]
  - Off label use [Unknown]
